FAERS Safety Report 21325657 (Version 1)
Quarter: 2022Q3

REPORT INFORMATION
  Report Type: Spontaneous
  Country: TW (occurrence: None)
  Receive Date: 20220912
  Receipt Date: 20220912
  Transmission Date: 20221026
  Serious: Yes (Hospitalization)
  Sender: FDA-Public Use
  Company Number: TW-ROCHE-3176498

PATIENT
  Age: 69 Year
  Sex: Male

DRUGS (1)
  1. MABTHERA [Suspect]
     Active Substance: RITUXIMAB
     Indication: Rheumatoid arthritis
     Dosage: ONCE EVERY 6 MONTHS. ON AN UNREPORTED DATE IN 28/JUN/2022 AND 14/JUL/2022, THE PATIENT RECEIVED THE
     Route: 065

REACTIONS (1)
  - COVID-19 pneumonia [Recovered/Resolved]
